FAERS Safety Report 22054407 (Version 3)
Quarter: 2023Q2

REPORT INFORMATION
  Report Type: Spontaneous
  Country: FR (occurrence: FR)
  Receive Date: 20230302
  Receipt Date: 20230427
  Transmission Date: 20230721
  Serious: No
  Sender: FDA-Public Use
  Company Number: FR-SANOFI-01508730

PATIENT
  Age: 70 Year
  Sex: Male

DRUGS (1)
  1. DUPIXENT [Suspect]
     Active Substance: DUPILUMAB
     Indication: Asthma
     Dosage: UNK, Q15D
     Dates: start: 202208

REACTIONS (4)
  - Headache [Unknown]
  - Inner ear disorder [Recovering/Resolving]
  - Vertigo [Unknown]
  - Dizziness postural [Unknown]

NARRATIVE: CASE EVENT DATE: 20230201
